FAERS Safety Report 10633768 (Version 1)
Quarter: 2014Q4

REPORT INFORMATION
  Report Type: Report from Study
  Country: IT (occurrence: IT)
  Receive Date: 20141205
  Receipt Date: 20141205
  Transmission Date: 20150529
  Serious: Yes (Death)
  Sender: FDA-Public Use
  Company Number: IT-SA-2014SA168751

PATIENT

DRUGS (1)
  1. ALEMTUZUMAB [Suspect]
     Active Substance: ALEMTUZUMAB
     Indication: CHRONIC LYMPHOCYTIC LEUKAEMIA RECURRENT
     Dosage: TOTAL WEEKLY DOSE {/=45 MG AND A CUMULATIVE DOSE {/=600?MG GIVEN FOR UP TO 18 WEEKS
     Route: 058

REACTIONS (1)
  - Myelodysplastic syndrome [Fatal]
